FAERS Safety Report 7943309-7 (Version None)
Quarter: 2011Q4

REPORT INFORMATION
  Report Type: 
  Country: None (occurrence: None)
  Receive Date: 20111128
  Receipt Date: 20111122
  Transmission Date: 20120403
  Serious: Yes (Other)
  Sender: FDA-Public Use
  Company Number: PHEH2005US01236

PATIENT
  Sex: Male
  Weight: 93.424 kg

DRUGS (32)
  1. ZOCOR [Concomitant]
     Dosage: 40 MG, QD
     Route: 048
  2. BENADRYL ^ACHE^ [Concomitant]
  3. ACYCLOVIR [Concomitant]
  4. HYZAAR [Concomitant]
  5. VITAMIN B COMPLEX CAP [Concomitant]
  6. SIMVASTATIN [Concomitant]
  7. WELLBUTRIN SR [Concomitant]
     Indication: DEPRESSION
     Dosage: 150 MG, BID
     Route: 048
  8. KAOPECTATE [Concomitant]
  9. LORTAB [Concomitant]
     Dosage: 5 MG,
  10. ASCORBIC ACID [Concomitant]
  11. ZOMETA [Suspect]
     Indication: METASTASES TO BONE
     Dosage: 4 MG, Q3WK
     Dates: start: 20021029, end: 20030903
  12. ANTINEOPLASTIC AGENTS [Concomitant]
     Dates: end: 20060420
  13. CARBOPLATIN [Concomitant]
     Indication: PROSTATE CANCER METASTATIC
  14. IBUPROFEN [Concomitant]
     Dosage: 800 MG,
  15. REMERON [Concomitant]
     Dosage: 30 MG, QHS
     Route: 048
  16. CASODEX [Concomitant]
     Indication: PROSTATE CANCER METASTATIC
     Dosage: 50 MG, QD
     Route: 048
  17. LORAZEPAM [Concomitant]
  18. DECADRON [Concomitant]
     Dosage: 4 MG,
  19. KEFLEX [Concomitant]
  20. LEVAQUIN [Concomitant]
  21. LUPRON [Concomitant]
     Indication: PROSTATE CANCER METASTATIC
  22. TAXOL [Concomitant]
     Indication: PROSTATE CANCER METASTATIC
  23. COUMADIN [Concomitant]
     Dates: end: 20041005
  24. PENICILLIN VK [Concomitant]
  25. ZOLPIDEM [Concomitant]
     Dosage: 5 MG, QHS
  26. LEXAPRO [Concomitant]
     Dosage: 10 MG, QD
     Route: 048
  27. ATIVAN [Concomitant]
  28. ELIXIR PAREGORIQUE ^GIFRER^ [Concomitant]
  29. ASPIRIN [Concomitant]
  30. BUPROPION HCL [Concomitant]
  31. PERIDEX [Concomitant]
  32. MULTI-VITAMINS [Concomitant]

REACTIONS (22)
  - FISTULA [None]
  - INSOMNIA [None]
  - HYPERMETROPIA [None]
  - TACHYCARDIA [None]
  - HERPES ZOSTER [None]
  - DYSPNOEA [None]
  - PRESBYOPIA [None]
  - OSTEONECROSIS OF JAW [None]
  - EXOSTOSIS [None]
  - COLONIC POLYP [None]
  - BLOOD PRESSURE INCREASED [None]
  - JAW DISORDER [None]
  - IMPAIRED HEALING [None]
  - NUCLEAR MAGNETIC RESONANCE IMAGING ABNORMAL [None]
  - SWELLING [None]
  - HAEMORRHOIDS [None]
  - ANXIETY [None]
  - CATARACT [None]
  - BONE DISORDER [None]
  - FISTULA DISCHARGE [None]
  - POOR VENOUS ACCESS [None]
  - HYPERTENSION [None]
